FAERS Safety Report 24720474 (Version 1)
Quarter: 2024Q4

REPORT INFORMATION
  Report Type: Report from Study
  Country: US (occurrence: US)
  Receive Date: 20241211
  Receipt Date: 20241211
  Transmission Date: 20250115
  Serious: Yes (Hospitalization, Other)
  Sender: ACADIA PHARMACEUTICALS
  Company Number: US-ACADIA PHARMACEUTICALS INC.-ACA-2024-PIM-008017

PATIENT
  Sex: Male

DRUGS (1)
  1. NUPLAZID [Suspect]
     Active Substance: PIMAVANSERIN TARTRATE
     Indication: Parkinson^s disease
     Dosage: 34 MILLIGRAM, QD
     Route: 048
     Dates: start: 202403

REACTIONS (7)
  - Pneumonia aspiration [Unknown]
  - Urinary tract infection [Unknown]
  - Tremor [Unknown]
  - On and off phenomenon [Unknown]
  - Stress [Unknown]
  - Depression [Unknown]
  - Disease progression [Unknown]
